FAERS Safety Report 5432180-3 (Version None)
Quarter: 2007Q3

REPORT INFORMATION
  Report Type: 
  Country: None (occurrence: None)
  Receive Date: 20070830
  Receipt Date: 20070829
  Transmission Date: 20080115
  Serious: Yes (Hospitalization)
  Sender: FDA-Public Use
  Company Number: FR-MERCK-0708FRA00052

PATIENT
  Age: 56 Year
  Sex: Female
  Weight: 91 kg

DRUGS (6)
  1. PRIMAXIN [Suspect]
     Indication: SEPSIS
     Route: 042
     Dates: start: 20070624, end: 20070627
  2. PRIMAXIN [Suspect]
     Route: 042
     Dates: start: 20070628, end: 20070706
  3. PRIMAXIN [Suspect]
     Indication: STAPHYLOCOCCAL INFECTION
     Route: 042
     Dates: start: 20070624, end: 20070627
  4. PRIMAXIN [Suspect]
     Route: 042
     Dates: start: 20070628, end: 20070706
  5. VANCOMYCIN [Suspect]
     Indication: SEPSIS
     Route: 042
     Dates: start: 20070625, end: 20070704
  6. VANCOMYCIN [Suspect]
     Indication: STAPHYLOCOCCAL INFECTION
     Route: 042
     Dates: start: 20070625, end: 20070704

REACTIONS (4)
  - HYPOTENSION [None]
  - PURPURA [None]
  - PYREXIA [None]
  - RASH MACULO-PAPULAR [None]
